FAERS Safety Report 18170013 (Version 1)
Quarter: 2020Q3

REPORT INFORMATION
  Report Type: Spontaneous
  Country: US (occurrence: US)
  Receive Date: 20200818
  Receipt Date: 20200818
  Transmission Date: 20201103
  Serious: Yes (Hospitalization, Other)
  Sender: FDA-Public Use
  Company Number: None

PATIENT
  Age: 9 Month
  Sex: Female
  Weight: 6.9 kg

DRUGS (8)
  1. BUDESONIDE. [Concomitant]
     Active Substance: BUDESONIDE
  2. CARBAGLU [Concomitant]
     Active Substance: CARGLUMIC ACID
  3. FAMOTIDINE. [Concomitant]
     Active Substance: FAMOTIDINE
  4. ERYTHROMYCIN. [Concomitant]
     Active Substance: ERYTHROMYCIN
  5. CARNITINE GT [Concomitant]
  6. VITAMIN D [Concomitant]
     Active Substance: VITAMIN D NOS
  7. LEVALBUTEROL. [Concomitant]
     Active Substance: LEVALBUTEROL
  8. TRIHEPTANOIN (UX007) [Suspect]
     Active Substance: TRIHEPTANOIN
     Indication: CARNITINE-ACYLCARNITINE TRANSLOCASE DEFICIENCY
     Dosage: ?          OTHER ROUTE:GTUBE?
     Dates: start: 20191031

REACTIONS (6)
  - Tachycardia [None]
  - Hypercapnia [None]
  - Respiratory rate decreased [None]
  - Pyrexia [None]
  - Aspartate aminotransferase increased [None]
  - Pulse pressure increased [None]

NARRATIVE: CASE EVENT DATE: 20200810
